FAERS Safety Report 6420705-0 (Version None)
Quarter: 2009Q4

REPORT INFORMATION
  Report Type: 
  Country: None (occurrence: None)
  Receive Date: 20091027
  Receipt Date: 20050906
  Transmission Date: 20100525
  Serious: Yes (Hospitalization)
  Sender: FDA-Public Use
  Company Number: 2009009247

PATIENT
  Age: 40 Year
  Sex: Female
  Weight: 56.6996 kg

DRUGS (16)
  1. ACTIQ [Suspect]
     Indication: NEUROPATHY PERIPHERAL
     Dosage: 3200 MCG (800 MCG, 4 IN 1 D), BU
     Route: 002
  2. DURAGESIC /00174601/ (FENTANYL) [Concomitant]
  3. ULTRALENTE INSULIN (INSULIN ZINC SUSPENSION) [Concomitant]
  4. HUMALOG /00030501/ (INSULIN) [Concomitant]
  5. POTASSIUM (POTASSIUM) [Concomitant]
  6. TORSEMIDE [Concomitant]
  7. SPIRONOLACTONE [Concomitant]
  8. WELLBURTIN /00700501/ (BUPROPION) [Concomitant]
  9. FOLIC ACID [Concomitant]
  10. PLAVIX [Concomitant]
  11. DIAZEPAM [Concomitant]
  12. ALTACE [Concomitant]
  13. PHENERGAN /00033001/ (PROMETHAZINE) [Concomitant]
  14. PROZAC [Concomitant]
  15. TOPROL-XL [Concomitant]
  16. NORVASC /00972401/ (AMLODIPINE) [Concomitant]

REACTIONS (2)
  - DIABETIC COMA [None]
  - PAIN [None]
